FAERS Safety Report 17941973 (Version 1)
Quarter: 2020Q2

REPORT INFORMATION
  Report Type: Spontaneous
  Country: DK (occurrence: DK)
  Receive Date: 20200624
  Receipt Date: 20200624
  Transmission Date: 20200714
  Serious: Yes (Hospitalization)
  Sender: FDA-Public Use
  Company Number: NVSC2020DK021107

PATIENT
  Age: 72 Year
  Sex: Female

DRUGS (15)
  1. BISACODYL. [Concomitant]
     Active Substance: BISACODYL
     Indication: CONSTIPATION
     Dosage: 10 MG (STYRKE: 5 MG.DOSIS: 10 MG VED BEHOV, MAX. 1XDGL.)
     Route: 048
     Dates: start: 20191004
  2. SIMVASTATIN. [Concomitant]
     Active Substance: SIMVASTATIN
     Indication: CARDIOVASCULAR EVENT PROPHYLAXIS
     Dosage: 40 MG, QD STYRKE: 40 MG)
     Route: 048
  3. MOXIFLOXACIN. [Suspect]
     Active Substance: MOXIFLOXACIN
     Indication: ARTHRITIS INFECTIVE
     Dosage: 400 MG, QD (STYRKE: 400 MG)
     Route: 048
     Dates: start: 20191009, end: 20191025
  4. IMDUR [Concomitant]
     Active Substance: ISOSORBIDE MONONITRATE
     Indication: CARDIAC DISORDER
     Dosage: 30 MG, QD (STYRKE: 30 MG)
     Route: 048
     Dates: start: 20180928
  5. LOSARTAN. [Concomitant]
     Active Substance: LOSARTAN
     Indication: HYPERTENSION
     Dosage: 100 MG, QD (STYRKE: 50 MG)
     Route: 048
     Dates: start: 20150520
  6. ACETYLSALICYLIC ACID [Concomitant]
     Active Substance: ASPIRIN
     Indication: ANTICOAGULANT THERAPY
     Dosage: 75 MG, QD (STYRKE: 75 MG)
     Route: 048
     Dates: start: 20131023
  7. PREGABALIN. [Concomitant]
     Active Substance: PREGABALIN
     Indication: ANXIETY
     Dosage: 50 MG, QD (STYRKE: 25 MG)
     Route: 048
     Dates: start: 20160927
  8. EMADINE [Concomitant]
     Active Substance: EMEDASTINE DIFUMARATE
     Indication: EYE INFECTION
     Dosage: 2 DRP, QD (STYRKE: 0,5 MG/ML.DOSIS: 1 DR?BE I HVERT ?JE 2XDGL.)
     Route: 050
     Dates: start: 20150907
  9. ELTROXIN [Concomitant]
     Active Substance: LEVOTHYROXINE
     Indication: HYPOTHYROIDISM
     Dosage: 50 UG, QD (STYRKE: 50 MIKROGRAM)
     Route: 048
     Dates: start: 20130326
  10. JERN C [Concomitant]
     Indication: ANAEMIA
     Dosage: 1 DF, QD
     Route: 048
     Dates: start: 20191014
  11. QUININE [Concomitant]
     Active Substance: QUININE
     Indication: MUSCLE SPASMS
     Dosage: 100 MG, QD (STYRKE: 100 MG)
     Route: 048
     Dates: start: 20190222
  12. OXYCODONE [Concomitant]
     Active Substance: OXYCODONE
     Indication: ANALGESIC THERAPY
     Dosage: UNK (STYRKE: 5 MG.DOSIS: 5 MG 2X DGL. + 5 MG VED BEHOV MAX 4X DGL.)
     Route: 048
     Dates: start: 20191003
  13. RIMACTAN [Suspect]
     Active Substance: RIFAMPIN
     Indication: OSTEOMYELITIS
     Dosage: 900 MG, QD (STYRKE: 300 MG)
     Route: 048
     Dates: start: 20191002, end: 20191025
  14. PARACETAMOL [Concomitant]
     Active Substance: ACETAMINOPHEN
     Indication: ANALGESIC THERAPY
     Dosage: 1000 MG (STYRKE: 500 MG.DOSIS: 1000 MG. VED BEHOV, MAX. 3XDGL)
     Route: 048
     Dates: start: 20160610
  15. CALCIUM [Concomitant]
     Active Substance: CALCIUM
     Indication: MINERAL SUPPLEMENTATION
     Dosage: 1 DF, QD
     Route: 048
     Dates: start: 20150616

REACTIONS (4)
  - Pruritus [Unknown]
  - Hepatic function abnormal [Recovered/Resolved]
  - Thrombocytopenia [Recovering/Resolving]
  - Petechiae [Unknown]

NARRATIVE: CASE EVENT DATE: 201910
